FAERS Safety Report 6602407-0 (Version None)
Quarter: 2010Q1

REPORT INFORMATION
  Report Type: 
  Country: None (occurrence: None)
  Receive Date: 20100225
  Receipt Date: 20100217
  Transmission Date: 20100710
  Serious: Yes (Hospitalization)
  Sender: FDA-Public Use
  Company Number: B0635977A

PATIENT
  Sex: Female

DRUGS (5)
  1. AUGMENTIN [Suspect]
     Indication: TONSILLITIS
     Dosage: 3G PER DAY
     Route: 048
     Dates: start: 20100210, end: 20100212
  2. TRIMETON [Concomitant]
  3. SOLU-MEDROL [Concomitant]
     Route: 042
  4. CETIRIZINE HCL [Concomitant]
  5. DELTACORTENE [Concomitant]

REACTIONS (2)
  - PRURITUS [None]
  - SKIN REACTION [None]
